FAERS Safety Report 9192164 (Version 1)
Quarter: 2013Q1

REPORT INFORMATION
  Report Type: Spontaneous
  Country: US (occurrence: US)
  Receive Date: 20130327
  Receipt Date: 20130327
  Transmission Date: 20140127
  Serious: Yes (Other)
  Sender: FDA-Public Use
  Company Number: US-JNJFOC-20130311679

PATIENT
  Age: 48 Year
  Sex: Male
  Weight: 77.11 kg

DRUGS (4)
  1. XARELTO [Suspect]
     Indication: CEREBROVASCULAR ACCIDENT PROPHYLAXIS
     Route: 048
     Dates: start: 20130312
  2. XARELTO [Suspect]
     Indication: ATRIAL FIBRILLATION
     Route: 048
     Dates: start: 20130312
  3. ULTRACET [Concomitant]
     Indication: PAIN
     Dosage: EVERY 4- 6 HOURS
     Route: 048
  4. GABAPENTIN [Concomitant]
     Indication: SCIATICA
     Route: 048

REACTIONS (3)
  - Blindness unilateral [Recovered/Resolved]
  - Vision blurred [Not Recovered/Not Resolved]
  - Feeling abnormal [Not Recovered/Not Resolved]
